FAERS Safety Report 7867908-6 (Version None)
Quarter: 2011Q4

REPORT INFORMATION
  Report Type: 
  Country: None (occurrence: None)
  Receive Date: 20111028
  Receipt Date: 20111018
  Transmission Date: 20120403
  Serious: Yes (Other)
  Sender: FDA-Public Use
  Company Number: BE-UCBSA-044253

PATIENT
  Sex: Female

DRUGS (2)
  1. CARBAMAZEPINE [Concomitant]
  2. LEVETIRACETAM [Suspect]
     Indication: EPILEPSY
     Dosage: DAILY DOSE: 3000 (UNITS UNSPECIFIED) IN THE FIRST TRIMESTER

REACTIONS (2)
  - ABORTION SPONTANEOUS [None]
  - PREGNANCY [None]
